FAERS Safety Report 5977720-0 (Version None)
Quarter: 2008Q4

REPORT INFORMATION
  Report Type: 
  Country: None (occurrence: None)
  Receive Date: 20081203
  Receipt Date: 20081128
  Transmission Date: 20090506
  Serious: Yes (Death, Hospitalization)
  Sender: FDA-Public Use
  Company Number: GB-JNJFOC-20081200147

PATIENT
  Age: 56 Year
  Sex: Female
  Weight: 65 kg

DRUGS (14)
  1. DOXORUBICIN HCL [Suspect]
     Indication: BREAST CANCER
     Dosage: 6 CYCLES
     Route: 042
  2. CYCLOPHOSPHAMIDE [Suspect]
     Indication: BREAST CANCER
     Dosage: 2 CYCLES
     Route: 065
  3. DOCETAXEL [Suspect]
     Indication: BREAST CANCER
     Dosage: 6 CYCLES
     Route: 065
  4. DOMPERIDONE [Concomitant]
     Route: 065
  5. BENZYDAMINE [Concomitant]
     Route: 065
  6. CHLORHEXIDINE GLUCONATE [Concomitant]
     Route: 065
  7. GENTAMICIN [Concomitant]
     Route: 065
  8. GRANISETRON [Concomitant]
     Route: 065
  9. NYSTATIN [Concomitant]
     Route: 065
  10. OMEPRAZOLE [Concomitant]
     Route: 065
  11. ACETAMINOPHEN [Concomitant]
     Route: 065
  12. PEGFILGRASTIM [Concomitant]
     Route: 065
  13. PREDNISOLONE [Concomitant]
     Route: 065
  14. TAZOCIN [Concomitant]
     Route: 065

REACTIONS (1)
  - INTERSTITIAL LUNG DISEASE [None]
